FAERS Safety Report 14663107 (Version 1)
Quarter: 2018Q1

REPORT INFORMATION
  Report Type: Spontaneous
  Country: CH (occurrence: CH)
  Receive Date: 20180321
  Receipt Date: 20180321
  Transmission Date: 20180509
  Serious: Yes (Hospitalization, Other)
  Sender: FDA-Public Use
  Company Number: CH-IPCA LABORATORIES LIMITED-IPC-2018-CH-000509

PATIENT
  Age: 15 Year
  Sex: Female

DRUGS (1)
  1. FUROSEMIDE. [Suspect]
     Active Substance: FUROSEMIDE
     Indication: PRODUCT USED FOR UNKNOWN INDICATION
     Dosage: UNK
     Route: 065

REACTIONS (9)
  - Hypokalaemia [Recovering/Resolving]
  - Hypomagnesaemia [Recovering/Resolving]
  - Metabolic alkalosis [Recovering/Resolving]
  - Electrocardiogram QT interval abnormal [Recovering/Resolving]
  - Hyponatraemia [Recovering/Resolving]
  - Nephrocalcinosis [Unknown]
  - Acute kidney injury [Recovering/Resolving]
  - Drug abuse [Unknown]
  - Hypochloraemia [Recovering/Resolving]
